FAERS Safety Report 5148629-X (Version None)
Quarter: 2006Q4

REPORT INFORMATION
  Report Type: 
  Country: None (occurrence: None)
  Receive Date: 20061107
  Receipt Date: 20061103
  Transmission Date: 20070319
  Serious: Yes (Other)
  Sender: FDA-Public Use
  Company Number: US-CVT-061741

PATIENT
  Age: 61 Year
  Sex: Female
  Weight: 88.4 kg

DRUGS (34)
  1. RANEXA [Suspect]
     Indication: ANGINA PECTORIS
     Dosage: 500 MG, SINGLE, ORAL
     Route: 048
     Dates: start: 20060801, end: 20060801
  2. ACIPHEX [Concomitant]
  3. COZAAR [Concomitant]
  4. ESTRACE [Concomitant]
  5. BAZA (MICONAZOLE NITRATE) [Concomitant]
  6. BACITRACIN [Concomitant]
  7. PHENERGAN /00033001/   (PROMETHAZINE) [Concomitant]
  8. MACROBID [Concomitant]
  9. NORCO [Concomitant]
  10. LORTAB /00607101/ (HYDRCODONE BITARTRATE, PARACETAMOL) [Concomitant]
  11. DARVOCET [Concomitant]
  12. DEMEROL (PETHIDINE HDYROCHLORIDE) [Concomitant]
  13. FENTANYL /00174601/ (FENTANYL) [Concomitant]
  14. ALBUTEROL  /00139501/ (SALBUTAMOL) [Concomitant]
  15. NITROLINGUAL-PUMPSPRAY (GLYCERYL TRINITRATE) [Concomitant]
  16. EPIPEN  /00003901/ (EPINEPHRINE) [Concomitant]
  17. BENADRYL /00000402/  (DIPHENHYDRAMINE HYDROCHLORIDE) [Concomitant]
  18. RHINARIS (MACROGOL, PROPYLENE GLYCOL) [Concomitant]
  19. COUMADIN [Concomitant]
  20. IMDUR [Concomitant]
  21. ASPIRIN [Concomitant]
  22. SYNTHROID [Concomitant]
  23. ANTIVERT /00007101/ (MECLOZINE HDYROCHLORIDE, NICOTINIC ACID) [Concomitant]
  24. LASIX [Concomitant]
  25. LIPITOR  /01326101/ (ATORVASTATIN) [Concomitant]
  26. TUMS /00108001/ (CALCIUM CARBONATE) [Concomitant]
  27. LEXAPRO [Concomitant]
  28. NASACORT AQ (TRIAMCINOLONE ACETONIDE) [Concomitant]
  29. CLARINEX /01398501/ (DESLORATADINE) [Concomitant]
  30. HUMIBID (GUAIFENSESIN) [Concomitant]
  31. TOPROX XL (METOPROLOL SUCCINATE) [Concomitant]
  32. HYDRALAZINE HCL [Concomitant]
  33. XANAX [Concomitant]
  34. CLONOPIN [Concomitant]

REACTIONS (1)
  - HYPERSENSITIVITY [None]
